FAERS Safety Report 15119993 (Version 4)
Quarter: 2018Q3

REPORT INFORMATION
  Report Type: Report from Study
  Country: DE (occurrence: DE)
  Receive Date: 20180709
  Receipt Date: 20180820
  Transmission Date: 20181010
  Serious: Yes (Hospitalization)
  Sender: FDA-Public Use
  Company Number: DE-ROCHE-2145108

PATIENT
  Age: 77 Year
  Sex: Female
  Weight: 53 kg

DRUGS (13)
  1. VENETOCLAX. [Suspect]
     Active Substance: VENETOCLAX
     Dosage: CYCLE 2 (RAMP UP 50 MG TO 400 MG) AS PER PROTOCOL
     Route: 048
  2. IBRUTINIB [Suspect]
     Active Substance: IBRUTINIB
     Indication: CHRONIC LYMPHOCYTIC LEUKAEMIA
     Dosage: FORM AS PER PROTOCOL?DATE OF LAST DOSE PRIOR TO SAE: 21/JUN/2018
     Route: 048
     Dates: start: 20171106
  3. VENETOCLAX. [Suspect]
     Active Substance: VENETOCLAX
     Dosage: DATE OF LAST DOSE PRIOR TO SAE: 21/JUN/2018?CYCLE 3?12
     Route: 048
  4. OBINUTUZUMAB. [Suspect]
     Active Substance: OBINUTUZUMAB
     Indication: CHRONIC LYMPHOCYTIC LEUKAEMIA
     Route: 042
     Dates: start: 20171106
  5. BISOPROLOL [Concomitant]
     Active Substance: BISOPROLOL
     Route: 048
  6. AMLODIPINE [Concomitant]
     Active Substance: AMLODIPINE BESYLATE
     Route: 048
  7. CANDESARTAN. [Concomitant]
     Active Substance: CANDESARTAN
     Route: 048
  8. COTRIMOXAZOL [Concomitant]
     Active Substance: SULFAMETHOXAZOLE\TRIMETHOPRIM
     Route: 048
  9. VENETOCLAX. [Suspect]
     Active Substance: VENETOCLAX
     Indication: CHRONIC LYMPHOCYTIC LEUKAEMIA
     Dosage: CYCLE 1?LAST DOSE OF 400 MG DAILY ?ON 21/JUN/2018, VENETOCLAX INTERRUPTED
     Route: 048
     Dates: start: 20171128
  10. OBINUTUZUMAB. [Suspect]
     Active Substance: OBINUTUZUMAB
     Dosage: THE LAST DOSE OF OBINUTUZUMAB WAS GIVEN ON 26/MAR/2018
     Route: 042
     Dates: end: 20180326
  11. ACYCLOVIR. [Concomitant]
     Active Substance: ACYCLOVIR
     Route: 048
  12. ALLOPURINOL. [Concomitant]
     Active Substance: ALLOPURINOL
     Route: 048
  13. MICTONORM UNO [Concomitant]
     Route: 048

REACTIONS (1)
  - Progressive multifocal leukoencephalopathy [Recovering/Resolving]

NARRATIVE: CASE EVENT DATE: 20180621
